FAERS Safety Report 19086819 (Version 1)
Quarter: 2021Q2

REPORT INFORMATION
  Report Type: Spontaneous
  Country: US (occurrence: US)
  Receive Date: 20210401
  Receipt Date: 20210401
  Transmission Date: 20210717
  Serious: Yes (Life-Threatening, Hospitalization)
  Sender: FDA-Public Use
  Company Number: None

PATIENT
  Age: 75 Year
  Sex: Male

DRUGS (1)
  1. METHOTREXATE (METHOTREXATE NA 2.5MG TAB) [Suspect]
     Active Substance: METHOTREXATE
     Route: 048
     Dates: start: 20201026, end: 20201224

REACTIONS (4)
  - Respiratory depression [None]
  - Hypersensitivity pneumonitis [None]
  - Respiratory failure [None]
  - Lung opacity [None]

NARRATIVE: CASE EVENT DATE: 20210106
